FAERS Safety Report 13272481 (Version 1)
Quarter: 2017Q1

REPORT INFORMATION
  Report Type: Other
  Country: DE (occurrence: DE)
  Receive Date: 20170227
  Receipt Date: 20170227
  Transmission Date: 20170428
  Serious: Yes (Congenital Anomaly)
  Sender: FDA-Public Use
  Company Number: DE-LUPIN PHARMACEUTICALS INC.-E2B_00007438

PATIENT
  Age: 1 Day
  Sex: Male
  Weight: 3.52 kg

DRUGS (3)
  1. LEVETIRACETAM. [Suspect]
     Active Substance: LEVETIRACETAM
     Route: 064
     Dates: end: 20160828
  2. MATERNA DHA [Concomitant]
     Indication: PROPHYLAXIS OF NEURAL TUBE DEFECT
     Route: 064
     Dates: start: 20151125, end: 20160828
  3. LEVETIRACETAM. [Suspect]
     Active Substance: LEVETIRACETAM
     Indication: EPILEPSY
     Route: 064
     Dates: start: 20151125

REACTIONS (3)
  - Polydactyly [Not Recovered/Not Resolved]
  - Foetal exposure during pregnancy [Unknown]
  - Syndactyly [Not Recovered/Not Resolved]

NARRATIVE: CASE EVENT DATE: 20160828
